FAERS Safety Report 11289885 (Version 1)
Quarter: 2015Q3

REPORT INFORMATION
  Report Type: Report from Study
  Country: US (occurrence: US)
  Receive Date: 20150721
  Receipt Date: 20150721
  Transmission Date: 20151125
  Serious: Yes (Other)
  Sender: FDA-Public Use
  Company Number: US-GILEAD-2015-0163540

PATIENT
  Age: 57 Year
  Sex: Female

DRUGS (1)
  1. LEDIPASVIR/SOFOSBUVIR [Suspect]
     Active Substance: LEDIPASVIR\SOFOSBUVIR
     Indication: CHRONIC HEPATITIS C
     Dosage: 1 DF, UNK
     Route: 048
     Dates: start: 201501, end: 201504

REACTIONS (7)
  - Poor quality sleep [Unknown]
  - Hepatic cancer [Unknown]
  - Pain in extremity [Not Recovered/Not Resolved]
  - Hepatic neoplasm [Unknown]
  - Arthralgia [Not Recovered/Not Resolved]
  - Arthralgia [Unknown]
  - Paraesthesia [Unknown]

NARRATIVE: CASE EVENT DATE: 2015
